FAERS Safety Report 9056873 (Version 1)
Quarter: 2013Q1

REPORT INFORMATION
  Report Type: Report from Study
  Country: JP (occurrence: JP)
  Receive Date: 20130201
  Receipt Date: 20130201
  Transmission Date: 20140127
  Serious: Yes (Other)
  Sender: FDA-Public Use
  Company Number: JP-GLAXOSMITHKLINE-B0860836A

PATIENT
  Age: 60 None
  Sex: Female
  Weight: 53 kg

DRUGS (2)
  1. TYKERB [Suspect]
     Indication: BREAST CANCER
     Route: 048
     Dates: start: 20100603, end: 20120430
  2. XELODA [Suspect]
     Route: 048
     Dates: start: 20100603, end: 20120430

REACTIONS (4)
  - Pulmonary fibrosis [Not Recovered/Not Resolved]
  - Pigmentation disorder [Recovering/Resolving]
  - Decreased appetite [Not Recovered/Not Resolved]
  - Rash [Not Recovered/Not Resolved]
